FAERS Safety Report 9515082 (Version 2)
Quarter: 2013Q3

REPORT INFORMATION
  Report Type: Spontaneous
  Country: FI (occurrence: FI)
  Receive Date: 20130911
  Receipt Date: 20130911
  Transmission Date: 20140515
  Serious: Yes (Life-Threatening, Hospitalization, Disabling)
  Sender: FDA-Public Use
  Company Number: FI-JNJFOC-20130607259

PATIENT
  Age: 63 Year
  Sex: Male

DRUGS (11)
  1. XARELTO [Suspect]
     Indication: THROMBOSIS PROPHYLAXIS
     Route: 048
     Dates: start: 20130120, end: 20130603
  2. XARELTO [Suspect]
     Indication: ATRIAL FIBRILLATION
     Route: 048
     Dates: start: 20130120, end: 20130603
  3. JANUVIA [Concomitant]
     Route: 048
  4. DIFORMIN [Concomitant]
     Route: 048
  5. LANTUS [Concomitant]
     Route: 058
  6. FURESIS [Concomitant]
     Route: 048
  7. LERCANIDIPINE HYDROCHLORIDE [Concomitant]
     Route: 048
  8. LOSARTAN [Concomitant]
     Route: 048
  9. SIMVASTATIN [Concomitant]
     Route: 048
  10. CELESTODERM [Concomitant]
     Route: 061
  11. CELESTODERM GENTAMICIN [Concomitant]
     Route: 061

REACTIONS (9)
  - Cerebellar haemorrhage [Not Recovered/Not Resolved]
  - Cerebellar haematoma [Unknown]
  - Headache [Unknown]
  - Vomiting [Unknown]
  - Muscular weakness [Unknown]
  - Parinaud syndrome [Unknown]
  - Central nervous system lesion [Unknown]
  - Cerebral infarction [Unknown]
  - Loss of consciousness [Unknown]
